FAERS Safety Report 24743800 (Version 1)
Quarter: 2024Q4

REPORT INFORMATION
  Report Type: Report from Study
  Country: ES (occurrence: ES)
  Receive Date: 20241217
  Receipt Date: 20241217
  Transmission Date: 20250115
  Serious: Yes (Other)
  Sender: TEVA
  Company Number: ES-TEVA-VS-3275311

PATIENT
  Age: 81 Year
  Sex: Female

DRUGS (9)
  1. TERIPARATIDE [Suspect]
     Active Substance: TERIPARATIDE
     Indication: Osteoporosis
     Route: 065
     Dates: start: 20241205
  2. LEVOTHYROXINE SODIUM [Concomitant]
     Active Substance: LEVOTHYROXINE SODIUM
     Indication: Hypothyroidism
     Dosage: DOSAGE: VARIABLE, START DATE: LONG TIME AGO, END DATE: CONTINUED
     Route: 065
  3. DILTIAZEM [Concomitant]
     Active Substance: DILTIAZEM
     Indication: Angina pectoris
     Dosage: 120, START DATE: LONG TIME AGO, END DATE: CONTINUED
     Route: 065
  4. SPIRIVA RESPIMAT [Concomitant]
     Active Substance: TIOTROPIUM BROMIDE
     Indication: Asthma
     Dosage: 2 INHALATIONS A DAY, START DATE: LONG TIME AGO, END DATE: CONTINUED
     Route: 065
  5. NITROGEN [Concomitant]
     Active Substance: NITROGEN
     Indication: Angina pectoris
     Dosage: START DATE: LONG TIME AGO, END DATE: CONTINUED
     Route: 065
  6. VENTOLIN [Concomitant]
     Active Substance: ALBUTEROL SULFATE
     Indication: Asthma
     Dosage: 2 INHALATIONS WHEN NEEDED, START DATE: LONG TIME AGO, END DATE: CONTINUED
     Route: 065
  7. PREDNISONE [Concomitant]
     Active Substance: PREDNISONE
     Indication: Bronchitis
     Dosage: 10, END DATE: CONTINUED
     Route: 065
     Dates: start: 202410
  8. PRADAXA [Concomitant]
     Active Substance: DABIGATRAN ETEXILATE MESYLATE
     Indication: Angina pectoris
     Dosage: 1,5, START DATE: LONG TIME AGO, END DATE: CONTINUED
     Route: 065
  9. FUROSEMIDE [Concomitant]
     Active Substance: FUROSEMIDE
     Indication: Angina pectoris
     Dosage: 1/2 PER DAY, 40, START DATE: LONG TIME AGO, END DATE: CONTINUED
     Route: 065

REACTIONS (3)
  - Dizziness [Not Recovered/Not Resolved]
  - Nausea [Not Recovered/Not Resolved]
  - Respiratory fatigue [Not Recovered/Not Resolved]

NARRATIVE: CASE EVENT DATE: 20241205
